FAERS Safety Report 9258695 (Version 1)
Quarter: 2013Q2

REPORT INFORMATION
  Report Type: Report from Study
  Country: CA (occurrence: CA)
  Receive Date: 20130426
  Receipt Date: 20130426
  Transmission Date: 20140414
  Serious: Yes (Other)
  Sender: FDA-Public Use
  Company Number: CA-JNJFOC-20130412679

PATIENT
  Sex: Female
  Weight: 63.4 kg

DRUGS (5)
  1. REMICADE [Suspect]
     Indication: CROHN^S DISEASE
     Route: 042
     Dates: start: 20071010
  2. IMURAN [Concomitant]
     Route: 065
  3. CELEXA [Concomitant]
     Route: 065
  4. BIRTH CONTROL PILLS (NOS) [Concomitant]
     Route: 065
  5. OMEPRAZOLE [Concomitant]
     Route: 065

REACTIONS (1)
  - Cholelithiasis [Unknown]
